FAERS Safety Report 5615810-2 (Version None)
Quarter: 2008Q1

REPORT INFORMATION
  Report Type: 
  Country: None (occurrence: None)
  Receive Date: 20080201
  Receipt Date: 20070507
  Transmission Date: 20080703
  Serious: Yes (Disabling)
  Sender: FDA-Public Use
  Company Number: CH-GUERBET-20070009

PATIENT
  Age: 67 Year
  Sex: Female

DRUGS (6)
  1. DOTAREM: / GADOTERIC ACID [Suspect]
     Indication: ANGIOGRAM
     Dosage: 20, ML MILLILITRE(S), 1, TOTAL
     Route: 042
     Dates: start: 20040128, end: 20040128
  2. DOTAREM / GADOTERIC ACID [Suspect]
     Indication: ANGIOGRAM
     Dosage: 20, ML MILLILITRE(S), 1, TOTAL
     Route: 042
     Dates: start: 20040809, end: 20040809
  3. DOTAREM: / GADOTERIC ACID [Suspect]
     Indication: NUCLEAR MAGNETIC RESONANCE IMAGING
     Dosage: 20, ML MILLITLITRE(S), 1, TOTAL
     Route: 042
     Dates: start: 20050607, end: 20050607
  4. GADOVIST /GADOBUTROL [Concomitant]
  5. IOPAMIDOL 300 MG/ML / IOPAMIDOL [Concomitant]
  6. MAGNEVIST 0.5 MOL/L / GADOPENTETIC ACID [Concomitant]

REACTIONS (2)
  - DRUG TOXICITY [None]
  - NEPHROGENIC SYSTEMIC FIBROSIS [None]
